FAERS Safety Report 24602784 (Version 1)
Quarter: 2024Q4

REPORT INFORMATION
  Report Type: Spontaneous
  Country: US (occurrence: US)
  Receive Date: 20241111
  Receipt Date: 20241111
  Transmission Date: 20250115
  Serious: No
  Sender: AMGEN
  Company Number: US-AMGEN-USASP2024221021

PATIENT
  Age: 63 Year
  Sex: Female

DRUGS (1)
  1. TEPEZZA [Suspect]
     Active Substance: TEPROTUMUMAB-TRBW
     Indication: Endocrine ophthalmopathy
     Dosage: UNK UNK (1), Q3WK (FOR 8 INFUSIONS )
     Route: 040
     Dates: start: 20240305, end: 20240806

REACTIONS (3)
  - Weight decreased [Unknown]
  - Alopecia [Unknown]
  - Onychoclasis [Unknown]
